FAERS Safety Report 10072199 (Version 1)
Quarter: 2014Q2

REPORT INFORMATION
  Report Type: Spontaneous
  Country: BR (occurrence: BR)
  Receive Date: 20140411
  Receipt Date: 20140411
  Transmission Date: 20141212
  Serious: Yes (Other)
  Sender: FDA-Public Use
  Company Number: BR-ASTRAZENECA-2014SE24689

PATIENT
  Sex: Female

DRUGS (4)
  1. ATACAND [Suspect]
     Indication: HYPERTENSION
     Route: 048
     Dates: start: 2008
  2. ATACAND [Suspect]
     Indication: HYPERTENSION
     Route: 048
     Dates: end: 2012
  3. ATACAND HCT [Suspect]
     Indication: HYPERTENSION
     Dosage: 16/12.5 MG
     Route: 048
     Dates: start: 2012, end: 20140308
  4. SOMALGIN CARDIO [Concomitant]
     Indication: THROMBOCYTOSIS
     Dosage: 325 MG

REACTIONS (5)
  - Hypertension [Recovered/Resolved]
  - Blood pressure increased [Unknown]
  - Hypotension [Unknown]
  - Dizziness [Unknown]
  - Drug dose omission [Recovered/Resolved]
